FAERS Safety Report 9067605 (Version 1)
Quarter: 2013Q1

REPORT INFORMATION
  Report Type: Spontaneous
  Country: US (occurrence: US)
  Receive Date: 20130206
  Receipt Date: 20130206
  Transmission Date: 20140127
  Serious: No
  Sender: FDA-Public Use
  Company Number: US-BAYER-2013-009540

PATIENT
  Sex: Female

DRUGS (11)
  1. BETASERON [Suspect]
     Indication: MULTIPLE SCLEROSIS
     Dosage: 0.3 MG, QOD
     Route: 058
  2. AMPYRA [Concomitant]
  3. SUMATRIPTAN [Concomitant]
  4. ENABLEX [Concomitant]
  5. FUROSEMIDE [Concomitant]
  6. SERTRALINE [Concomitant]
  7. SULFAMETHOXAZOLE [Concomitant]
  8. ATENOLOL [Concomitant]
  9. AMLODIPINE BESYLATE [Concomitant]
  10. LOSARTAN [Concomitant]
  11. TIZANIDINE HYDROCHLORIDE [Concomitant]

REACTIONS (2)
  - Injection site pain [None]
  - Injection site erythema [None]
